FAERS Safety Report 5059407-4 (Version None)
Quarter: 2006Q3

REPORT INFORMATION
  Report Type: 
  Country: None (occurrence: None)
  Receive Date: 20060724
  Receipt Date: 20050607
  Transmission Date: 20061208
  Serious: No
  Sender: FDA-Public Use
  Company Number: US-AMGEN-KDL137829

PATIENT
  Sex: Male
  Weight: 85.4 kg

DRUGS (7)
  1. PROCRIT [Suspect]
     Indication: HIV INFECTION
     Route: 058
     Dates: start: 20050603
  2. MEDICINALPRODUCT NOT SPECIFIED BY SENDER [Concomitant]
  3. MEDICINALPRODUCT NOT SPECIFIED BY SENDER [Concomitant]
  4. MEDICINALPRODUCT NOT SPECIFIED BY SENDER [Concomitant]
  5. MEDICINALPRODUCT NOT SPECIFIED BY SENDER [Concomitant]
  6. MEDICINALPRODUCT NOT SPECIFIED BY SENDER [Concomitant]
  7. MEDICINALPRODUCT NOT SPECIFIED BY SENDER [Concomitant]

REACTIONS (4)
  - HYPERSENSITIVITY [None]
  - PRURITUS [None]
  - SWELLING FACE [None]
  - URTICARIA [None]
